FAERS Safety Report 18717413 (Version 1)
Quarter: 2021Q1

REPORT INFORMATION
  Report Type: Spontaneous
  Country: FR (occurrence: FR)
  Receive Date: 20210108
  Receipt Date: 20210108
  Transmission Date: 20210419
  Serious: Yes (Other)
  Sender: FDA-Public Use
  Company Number: FR-MYLANLABS-2021M1000854

PATIENT
  Age: 60 Year
  Sex: Male
  Weight: 130 kg

DRUGS (1)
  1. FONDAPARINUX [Suspect]
     Active Substance: FONDAPARINUX
     Indication: PULMONARY EMBOLISM
     Dosage: 12.5 MILLIGRAM PER MILLILITRE, QD
     Route: 058
     Dates: start: 20201117, end: 20201208

REACTIONS (2)
  - Post procedural haemorrhage [Recovered/Resolved]
  - Anticoagulation drug level increased [Recovered/Resolved]

NARRATIVE: CASE EVENT DATE: 20201209
